FAERS Safety Report 15878810 (Version 1)
Quarter: 2019Q1

REPORT INFORMATION
  Report Type: Spontaneous
  Country: US (occurrence: US)
  Receive Date: 20190103
  Receipt Date: 20190103
  Transmission Date: 20190417
  Serious: No
  Sender: FDA-Public Use
  Company Number: None

PATIENT
  Age: 35 Year
  Sex: Male

DRUGS (8)
  1. VITAMIN D [Concomitant]
     Active Substance: CHOLECALCIFEROL
  2. ALLOPURINOL. [Concomitant]
     Active Substance: ALLOPURINOL
  3. COLCRYS [Concomitant]
     Active Substance: COLCHICINE
  4. BOTOX [Concomitant]
     Active Substance: ONABOTULINUMTOXINA
  5. HUMIRA [Suspect]
     Active Substance: ADALIMUMAB
     Indication: PRODUCT USED FOR UNKNOWN INDICATION
     Dosage: ?          OTHER DOSE:1 INJ;?
     Route: 058
     Dates: start: 20181231
  6. HUMIRA [Suspect]
     Active Substance: ADALIMUMAB
     Indication: GOUT
  7. FOLIC ACID. [Concomitant]
     Active Substance: FOLIC ACID
  8. METHOTREXATE. [Concomitant]
     Active Substance: METHOTREXATE

REACTIONS (5)
  - Fatigue [None]
  - Product availability issue [None]
  - Abdominal pain [None]
  - Malaise [None]
  - Diarrhoea [None]

NARRATIVE: CASE EVENT DATE: 20181231
